FAERS Safety Report 6642686-7 (Version None)
Quarter: 2010Q1

REPORT INFORMATION
  Report Type: 
  Country: None (occurrence: None)
  Receive Date: 20100316
  Receipt Date: 20100305
  Transmission Date: 20100710
  Serious: Yes (Hospitalization)
  Sender: FDA-Public Use
  Company Number: 2009US004544

PATIENT
  Age: 74 Year
  Sex: Female

DRUGS (15)
  1. AMBISOME [Suspect]
     Indication: EYE INFECTION FUNGAL
     Dosage: 150 MG, UID/QD, IV NOS
     Route: 042
     Dates: start: 20091201, end: 20091217
  2. KYORIN AP 2 (CAFFEINE, SIMETRIDE) [Suspect]
     Indication: HEADACHE
     Dosage: ORAL
     Route: 048
     Dates: start: 20091210, end: 20091210
  3. KYORIN AP 2 (CAFFEINE, SIMETRIDE) [Suspect]
     Indication: HEADACHE
     Dosage: ORAL
     Route: 048
     Dates: start: 20091212, end: 20091212
  4. KYORIN AP 2 (CAFFEINE, SIMETRIDE) [Suspect]
     Indication: HEADACHE
     Dosage: ORAL
     Route: 048
     Dates: start: 20091213, end: 20091213
  5. KYORIN AP 2 (CAFFEINE, SIMETRIDE) [Suspect]
     Indication: HEADACHE
     Dosage: ORAL
     Route: 048
     Dates: start: 20091214, end: 20091214
  6. KYORIN AP 2 (CAFFEINE, SIMETRIDE) [Suspect]
     Indication: HEADACHE
     Dosage: ORAL
     Route: 048
     Dates: start: 20091215, end: 20091216
  7. ZOVIRAX [Concomitant]
  8. PREDNISOLONE [Concomitant]
  9. ADALAT CC [Concomitant]
  10. MUCOSTA (REBAMIPIDE) [Concomitant]
  11. SODIUM ALGINATE CALCIUM GLUCONATE INJ [Concomitant]
  12. POSTERISAN (HYDROCORTISONE) [Concomitant]
  13. EURAX [Concomitant]
  14. CEFAZOLIN SODIUM [Concomitant]
  15. ANESTHETICS, GENERAL [Concomitant]

REACTIONS (5)
  - ANAEMIA [None]
  - BLINDNESS UNILATERAL [None]
  - HEADACHE [None]
  - POST PROCEDURAL COMPLICATION [None]
  - TOXIC EPIDERMAL NECROLYSIS [None]
